FAERS Safety Report 5278364-9 (Version None)
Quarter: 2007Q1

REPORT INFORMATION
  Report Type: 
  Country: None (occurrence: None)
  Receive Date: 20061208
  Receipt Date: 20060918
  Transmission Date: 20070707
  Serious: Yes (Other)
  Sender: FDA-Public Use
  Company Number: USA-2003-0005820

PATIENT
  Sex: Female

DRUGS (9)
  1. OXYCONTIN [Suspect]
     Indication: DRUG USE FOR UNKNOWN INDICATION
     Dosage: 40 MG, SEE TEXT, ORAL
     Route: 048
  2. PERCOCET [Concomitant]
  3. NAPROSYN [Concomitant]
  4. SOMA [Concomitant]
  5. CLONIDINE [Concomitant]
  6. XANAX [Concomitant]
  7. SERZONE [Concomitant]
  8. ORAMORPH SR [Concomitant]
  9. ZYBAN [Concomitant]

REACTIONS (12)
  - BACK PAIN [None]
  - DRUG ABUSER [None]
  - DRUG DEPENDENCE [None]
  - DYSURIA [None]
  - EMOTIONAL DISTRESS [None]
  - HEAD INJURY [None]
  - HEADACHE [None]
  - HYPOAESTHESIA [None]
  - INSOMNIA [None]
  - MALAISE [None]
  - NECK PAIN [None]
  - PAIN [None]
